FAERS Safety Report 12724592 (Version 2)
Quarter: 2017Q1

REPORT INFORMATION
  Report Type: Spontaneous
  Country: DE (occurrence: DE)
  Receive Date: 20160908
  Receipt Date: 20170117
  Transmission Date: 20170428
  Serious: Yes (Death, Hospitalization)
  Sender: FDA-Public Use
  Company Number: DE-OTSUKA-2016_021434

PATIENT
  Sex: Male

DRUGS (1)
  1. DECITABINE. [Suspect]
     Active Substance: DECITABINE
     Indication: ACUTE MYELOID LEUKAEMIA
     Dosage: 20 MG/M2
     Route: 042
     Dates: start: 20160726, end: 20160730

REACTIONS (1)
  - Multiple organ dysfunction syndrome [Fatal]
